FAERS Safety Report 21311176 (Version 1)
Quarter: 2022Q3

REPORT INFORMATION
  Report Type: Spontaneous
  Country: US (occurrence: None)
  Receive Date: 20220909
  Receipt Date: 20220909
  Transmission Date: 20221026
  Serious: No
  Sender: FDA-Public Use
  Company Number: US-ARIS GLOBAL-202201-0125

PATIENT
  Sex: Male
  Weight: 95.295 kg

DRUGS (7)
  1. OXERVATE [Suspect]
     Active Substance: CENEGERMIN-BKBJ
     Indication: Neurotrophic keratopathy
     Route: 047
     Dates: start: 20211209
  2. PAXLOVID [Concomitant]
     Active Substance: NIRMATRELVIR\RITONAVIR
     Dosage: 300-100 MG
  3. IBUPROFEN [Concomitant]
     Active Substance: IBUPROFEN
  4. TYLENOL [Concomitant]
     Active Substance: ACETAMINOPHEN
  5. ADDERALL XR [Concomitant]
     Active Substance: AMPHETAMINE ASPARTATE\AMPHETAMINE SULFATE\DEXTROAMPHETAMINE SACCHARATE\DEXTROAMPHETAMINE SULFATE
     Dosage: SUSTAINED RELEASE 24 HOURS.
  6. METOPROLOL SUCCINATE [Concomitant]
     Active Substance: METOPROLOL SUCCINATE
  7. STELARA [Concomitant]
     Active Substance: USTEKINUMAB
     Dosage: 90 MG/ML SYRINGE

REACTIONS (2)
  - Pyrexia [Unknown]
  - COVID-19 [Unknown]
